FAERS Safety Report 20145801 (Version 1)
Quarter: 2021Q4

REPORT INFORMATION
  Report Type: Spontaneous
  Country: US (occurrence: None)
  Receive Date: 20211203
  Receipt Date: 20211203
  Transmission Date: 20220303
  Serious: Yes (Hospitalization)
  Sender: FDA-Public Use
  Company Number: None

PATIENT
  Age: 48 Year
  Sex: Female

DRUGS (5)
  1. TREMFYA [Suspect]
     Active Substance: GUSELKUMAB
     Indication: Psoriasis
     Dosage: OTHER FREQUENCY : 8 WKS;?
     Route: 058
     Dates: start: 20170928
  2. BACLOFEN [Concomitant]
     Active Substance: BACLOFEN
  3. LOSARTAN POTASSIUM [Concomitant]
     Active Substance: LOSARTAN POTASSIUM
  4. OXYBUTYNIN [Concomitant]
     Active Substance: OXYBUTYNIN
  5. DESIPRAMINE [Concomitant]
     Active Substance: DESIPRAMINE

REACTIONS (2)
  - Spinal operation [None]
  - Therapy interrupted [None]

NARRATIVE: CASE EVENT DATE: 20211105
